FAERS Safety Report 8585797 (Version 2)
Quarter: 2013Q1

REPORT INFORMATION
  Report Type: Spontaneous
  Country: US (occurrence: US)
  Receive Date: 20120530
  Receipt Date: 20130311
  Transmission Date: 20140127
  Serious: Yes (Other)
  Sender: FDA-Public Use
  Company Number: US-PFIZER INC-2012125654

PATIENT
  Age: 64 Year
  Sex: Female

DRUGS (2)
  1. GEODON [Suspect]
     Dosage: 60 MG, AT BEDTIME
  2. NEURONTIN [Suspect]
     Dosage: 800 MG, 4X/DAY

REACTIONS (1)
  - Back injury [Unknown]
